FAERS Safety Report 11194773 (Version 2)
Quarter: 2015Q4

REPORT INFORMATION
  Report Type: Spontaneous
  Country: JP (occurrence: JP)
  Receive Date: 20150617
  Receipt Date: 20151009
  Transmission Date: 20160304
  Serious: Yes (Other)
  Sender: FDA-Public Use
  Company Number: JP-009507513-1506JPN007141

PATIENT
  Age: 34 Year
  Sex: Female

DRUGS (1)
  1. CUBICIN [Suspect]
     Active Substance: DAPTOMYCIN
     Indication: STAPHYLOCOCCAL INFECTION
     Dosage: DAILY DOSAGE UNKNOWN
     Route: 041
     Dates: start: 20120119, end: 20120127

REACTIONS (1)
  - White blood cell count decreased [Unknown]
